FAERS Safety Report 12729642 (Version 2)
Quarter: 2016Q3

REPORT INFORMATION
  Report Type: Spontaneous
  Country: TR (occurrence: TR)
  Receive Date: 20160909
  Receipt Date: 20160930
  Transmission Date: 20161109
  Serious: Yes (Death, Life-Threatening, Hospitalization, Other)
  Sender: FDA-Public Use
  Company Number: TR-AMGEN-TURSP2016105878

PATIENT
  Sex: Female
  Weight: 17 kg

DRUGS (10)
  1. BLINCYTO [Suspect]
     Active Substance: BLINATUMOMAB
     Dosage: 7 UNK, QD
     Route: 042
     Dates: start: 20160726
  2. DEXAMETHAZON [Suspect]
     Active Substance: DEXAMETHASONE
     Indication: CHEMOTHERAPY
     Dosage: 1 MG, TID
     Route: 065
     Dates: start: 20160518, end: 20160806
  3. TARGOCID [Concomitant]
     Active Substance: TEICOPLANIN
     Indication: FEBRILE NEUTROPENIA
     Dosage: 170 MG, QD
     Route: 042
     Dates: start: 20160721, end: 20160806
  4. AMPHOTERICIN B, LIPOSOME [Concomitant]
     Active Substance: AMPHOTERICIN B
     Indication: OESOPHAGITIS
  5. AMPHOTERICIN B, LIPOSOME [Concomitant]
     Active Substance: AMPHOTERICIN B
     Indication: FEBRILE NEUTROPENIA
     Dosage: 50 MG, QD
     Route: 042
     Dates: start: 20160626, end: 20160806
  6. BLINCYTO [Suspect]
     Active Substance: BLINATUMOMAB
     Indication: ACUTE LYMPHOCYTIC LEUKAEMIA
     Dosage: 05 MUG, QD
     Route: 042
     Dates: start: 20160720
  7. BLINCYTO [Suspect]
     Active Substance: BLINATUMOMAB
     Dosage: 15 MUG, QD
     Route: 042
     Dates: start: 20160727, end: 20160729
  8. MERONEM [Concomitant]
     Active Substance: MEROPENEM
     Indication: FEBRILE NEUTROPENIA
     Dosage: 640 MG, TID
     Route: 042
     Dates: start: 20160720, end: 20160806
  9. ACICLOVIR [Concomitant]
     Active Substance: ACYCLOVIR
     Indication: PROPHYLAXIS
     Dosage: 100 MG, QID
     Route: 048
     Dates: start: 20160626, end: 20160728
  10. CLINDAMYCIN [Concomitant]
     Active Substance: CLINDAMYCIN\CLINDAMYCIN PHOSPHATE
     Indication: COLITIS
     Dosage: 170 MG, TID
     Route: 042
     Dates: start: 20160727, end: 20160801

REACTIONS (7)
  - Pancreatitis acute [Recovering/Resolving]
  - Off label use [Unknown]
  - Cholelithiasis [Unknown]
  - Pericardial effusion [Unknown]
  - Metabolic acidosis [Recovered/Resolved]
  - Renal failure [Unknown]
  - Pneumonia [Fatal]

NARRATIVE: CASE EVENT DATE: 20160726
